FAERS Safety Report 6501966-6 (Version None)
Quarter: 2009Q4

REPORT INFORMATION
  Report Type: 
  Country: None (occurrence: None)
  Receive Date: 20091216
  Receipt Date: 20091202
  Transmission Date: 20100525
  Serious: Yes (Life-Threatening, Hospitalization)
  Sender: FDA-Public Use
  Company Number: DE-MYLANLABS-2009S1020828

PATIENT
  Age: 61 Year
  Sex: Male
  Weight: 90 kg

DRUGS (7)
  1. SPIRONOLACTONE [Suspect]
     Indication: DRUG USE FOR UNKNOWN INDICATION
     Route: 048
     Dates: end: 20090905
  2. DIURAPID [Suspect]
     Indication: HYPERTENSION
     Route: 048
     Dates: end: 20090905
  3. OLMETEC [Suspect]
     Indication: HYPERTENSION
     Route: 048
     Dates: end: 20090905
  4. ENAHEXAL COMP. [Suspect]
     Indication: HYPERTENSION
     Dosage: 1 DF= 5MG ENALAPRIL + 12.5MG HCT
     Route: 048
     Dates: end: 20090905
  5. MEGLUCON [Suspect]
     Indication: TYPE 2 DIABETES MELLITUS
     Route: 048
     Dates: start: 20050101, end: 20090905
  6. MOXONIDINE [Concomitant]
     Indication: HYPERTENSION
     Route: 048
     Dates: end: 20090905
  7. HUMALOG [Concomitant]
     Indication: TYPE 2 DIABETES MELLITUS
     Dosage: DOSIS JE APPLIKATION: 20/0/16 IU
     Route: 058

REACTIONS (2)
  - LACTIC ACIDOSIS [None]
  - RENAL FAILURE ACUTE [None]
